FAERS Safety Report 23133227 (Version 1)
Quarter: 2023Q4

REPORT INFORMATION
  Report Type: Spontaneous
  Country: US (occurrence: US)
  Receive Date: 20231101
  Receipt Date: 20231101
  Transmission Date: 20240110
  Serious: Yes (Hospitalization, Other)
  Sender: FDA-Public Use
  Company Number: US-ALS-001025

PATIENT
  Age: 12 Year
  Sex: Male

DRUGS (2)
  1. METFORMIN [Suspect]
     Active Substance: METFORMIN HYDROCHLORIDE
     Indication: Product use in unapproved indication
     Dosage: METFORMIN WAS STARTED AND INCREASED TO 1,000 MG TWICE DAILY.
     Route: 065
  2. LONAPEGSOMATROPIN-TCGD [Suspect]
     Active Substance: LONAPEGSOMATROPIN-TCGD
     Indication: Growth hormone deficiency
     Dosage: 22 MG (0.25 MG/KG/WEEK) OF WEEKLY
     Route: 065

REACTIONS (3)
  - Intracranial pressure increased [Unknown]
  - Hyperglycaemia [Recovered/Resolved]
  - Off label use [Unknown]
